FAERS Safety Report 9899335 (Version 2)
Quarter: 2014Q1

REPORT INFORMATION
  Report Type: Spontaneous
  Country: US (occurrence: US)
  Receive Date: 20140214
  Receipt Date: 20140214
  Transmission Date: 20141002
  Serious: No
  Sender: FDA-Public Use
  Company Number: US-GILEAD-2011-0046652

PATIENT
  Age: 48 Year
  Sex: Female

DRUGS (5)
  1. LETAIRIS [Suspect]
     Indication: PULMONARY HYPERTENSION
     Dosage: 10 MG, UNK
     Route: 048
     Dates: start: 20100123
  2. LETAIRIS [Suspect]
     Indication: CONNECTIVE TISSUE DISORDER
  3. LETAIRIS [Suspect]
     Indication: SYSTEMIC LUPUS ERYTHEMATOSUS
  4. LETAIRIS [Suspect]
     Indication: SYSTEMIC SCLEROSIS
  5. ADCIRCA [Concomitant]
     Dosage: UNK
     Dates: start: 20111018

REACTIONS (2)
  - Pyrexia [Recovered/Resolved]
  - Chills [Recovered/Resolved]
